FAERS Safety Report 10213269 (Version 1)
Quarter: 2014Q2

REPORT INFORMATION
  Report Type: Spontaneous
  Country: US (occurrence: None)
  Receive Date: 20140530
  Receipt Date: 20140530
  Transmission Date: 20141212
  Serious: Yes (Hospitalization)
  Sender: FDA-Public Use
  Company Number: None

PATIENT
  Age: 54 Year
  Sex: Male
  Weight: 107.1 kg

DRUGS (1)
  1. DABIGATRAN [Suspect]
     Route: 048
     Dates: start: 20131221

REACTIONS (2)
  - Melaena [None]
  - Gastric haemorrhage [None]
